FAERS Safety Report 16253946 (Version 2)
Quarter: 2019Q2

REPORT INFORMATION
  Report Type: Spontaneous
  Country: JP (occurrence: JP)
  Receive Date: 20190430
  Receipt Date: 20190515
  Transmission Date: 20190711
  Serious: Yes (Life-Threatening, Hospitalization)
  Sender: FDA-Public Use
  Company Number: JP-TEVA-2019-JP-1043635

PATIENT
  Age: 59 Year
  Sex: Male

DRUGS (2)
  1. 5 FLUORORACIL [Suspect]
     Active Substance: FLUOROURACIL
     Indication: OESOPHAGEAL CARCINOMA
     Route: 065
  2. CISPLATIN. [Suspect]
     Active Substance: CISPLATIN
     Indication: OESOPHAGEAL CARCINOMA
     Route: 065

REACTIONS (2)
  - Respiratory failure [Unknown]
  - Pulmonary tuberculosis [Recovered/Resolved]
